FAERS Safety Report 5297238-0 (Version None)
Quarter: 2007Q2

REPORT INFORMATION
  Report Type: 
  Country: None (occurrence: None)
  Receive Date: 20070416
  Receipt Date: 20070405
  Transmission Date: 20071010
  Serious: Yes (Hospitalization)
  Sender: FDA-Public Use
  Company Number: US-JNJFOC-20070401497

PATIENT
  Sex: Female
  Weight: 43.55 kg

DRUGS (6)
  1. REMICADE [Suspect]
     Route: 042
  2. REMICADE [Suspect]
     Indication: CROHN'S DISEASE
     Route: 042
  3. BENADRYL [Concomitant]
  4. PREDNISONE TAB [Concomitant]
  5. SOLU-MEDROL [Concomitant]
  6. TYLENOL [Concomitant]

REACTIONS (2)
  - TYPE IV HYPERSENSITIVITY REACTION [None]
  - VOMITING [None]
